FAERS Safety Report 25592283 (Version 1)
Quarter: 2025Q3

REPORT INFORMATION
  Report Type: Spontaneous
  Country: CN (occurrence: CN)
  Receive Date: 20250722
  Receipt Date: 20250722
  Transmission Date: 20251021
  Serious: Yes (Hospitalization)
  Sender: PFIZER
  Company Number: CN-PFIZER INC-PV202500086266

PATIENT
  Age: 31 Year
  Sex: Male
  Weight: 95 kg

DRUGS (7)
  1. METHOTREXATE SODIUM [Suspect]
     Active Substance: METHOTREXATE SODIUM
     Indication: Bone sarcoma
     Dosage: 17 G, 1X/DAY
     Route: 041
     Dates: start: 20250627, end: 20250627
  2. VINCRISTINE SULFATE [Suspect]
     Active Substance: VINCRISTINE SULFATE
     Indication: Bone sarcoma
     Dosage: 2 MG, 1X/DAY
     Route: 041
     Dates: start: 20250627, end: 20250627
  3. SODIUM CHLORIDE [Concomitant]
     Active Substance: SODIUM CHLORIDE
     Indication: Vehicle solution use
     Dosage: 100 ML, 1X/DAY
     Route: 041
     Dates: start: 20250627, end: 20250627
  4. DEXTROSE [Concomitant]
     Active Substance: DEXTROSE MONOHYDRATE
     Indication: Vehicle solution use
     Dosage: 330 ML, 1X/DAY
     Route: 041
     Dates: start: 20250627, end: 20250627
  5. RAMOSETRON HYDROCHLORIDE [Concomitant]
     Active Substance: RAMOSETRON HYDROCHLORIDE
     Indication: Antiemetic supportive care
     Dosage: 0.3 MG, 2X/DAY
     Route: 041
     Dates: start: 20250626
  6. VITAMIN B6 [Concomitant]
     Active Substance: PYRIDOXINE HYDROCHLORIDE
     Indication: Antiemetic supportive care
     Dosage: 0.1 G, 1X/DAY
     Route: 041
     Dates: start: 20250626
  7. DEXAMETHASONE SODIUM PHOSPHATE [Concomitant]
     Active Substance: DEXAMETHASONE SODIUM PHOSPHATE
     Indication: Antiemetic supportive care
     Dosage: 5 MG, 1X/DAY
     Route: 041
     Dates: start: 20250626

REACTIONS (4)
  - Nausea [Recovering/Resolving]
  - Vomiting [Recovering/Resolving]
  - Eating disorder [Recovering/Resolving]
  - Dysphagia [Recovering/Resolving]

NARRATIVE: CASE EVENT DATE: 20250627
